FAERS Safety Report 6161853-2 (Version None)
Quarter: 2009Q2

REPORT INFORMATION
  Report Type: 
  Country: None (occurrence: None)
  Receive Date: 20090421
  Receipt Date: 20090413
  Transmission Date: 20091009
  Serious: Yes (Life-Threatening, Hospitalization, Other)
  Sender: FDA-Public Use
  Company Number: A0775068A

PATIENT
  Age: 30 Year
  Sex: Female
  Weight: 93.6 kg

DRUGS (4)
  1. LAMICTAL [Suspect]
     Indication: DRUG USE FOR UNKNOWN INDICATION
     Route: 048
  2. ZYRTEC [Concomitant]
  3. MUCINEX [Concomitant]
  4. TYLENOL [Concomitant]

REACTIONS (6)
  - BLISTER [None]
  - HEADACHE [None]
  - HYPERSENSITIVITY [None]
  - MOUTH ULCERATION [None]
  - RASH [None]
  - STEVENS-JOHNSON SYNDROME [None]
